FAERS Safety Report 14386655 (Version 2)
Quarter: 2019Q3

REPORT INFORMATION
  Report Type: Spontaneous
  Country: US (occurrence: US)
  Receive Date: 20180115
  Receipt Date: 20190830
  Transmission Date: 20191004
  Serious: Yes (Other)
  Sender: FDA-Public Use
  Company Number: US-SA-2017SA100282

PATIENT
  Age: 48 Year
  Sex: Female
  Weight: 81.65 kg

DRUGS (14)
  1. ACETYLSALICYLIC ACID [Concomitant]
     Active Substance: ASPIRIN
     Dosage: 81 MG,UNK
     Route: 065
  2. TAXOTERE [Suspect]
     Active Substance: DOCETAXEL
     Dosage: 150 MG,Q3W
     Route: 042
     Dates: start: 20110601, end: 20110601
  3. NEOSAR [Concomitant]
     Active Substance: CYCLOPHOSPHAMIDE
     Indication: INVASIVE DUCTAL BREAST CARCINOMA
     Dosage: UNK UNK,QCY
     Route: 042
  4. CYTOXAN [Concomitant]
     Active Substance: CYCLOPHOSPHAMIDE
     Indication: INVASIVE DUCTAL BREAST CARCINOMA
  5. INVOKANA [Concomitant]
     Active Substance: CANAGLIFLOZIN
     Dosage: UNK UNK,UNK
     Route: 048
  6. LOPRESSOR [Concomitant]
     Active Substance: METOPROLOL TARTRATE
     Dosage: 50 MG,QD
     Route: 048
  7. TAMOXIFEN [Concomitant]
     Active Substance: TAMOXIFEN
     Dosage: 20 MG,BID
     Route: 048
  8. LISINOPRIL. [Concomitant]
     Active Substance: LISINOPRIL
     Dosage: 20 MG,QD
     Route: 048
  9. GLUCOPHAGE [Concomitant]
     Active Substance: METFORMIN HYDROCHLORIDE
     Dosage: 1000 MG,BID
     Route: 048
  10. VICTOZA [Concomitant]
     Active Substance: LIRAGLUTIDE
     Dosage: UNK UNK,UNK
     Route: 065
  11. TAXOTERE [Suspect]
     Active Substance: DOCETAXEL
     Indication: INVASIVE DUCTAL BREAST CARCINOMA
     Dosage: 150 MG,Q3W
     Route: 042
     Dates: start: 20110216, end: 20110216
  12. ZETIA [Concomitant]
     Active Substance: EZETIMIBE
     Dosage: 10 MG,QD
     Route: 048
  13. NIZORAL [Concomitant]
     Active Substance: KETOCONAZOLE
     Dosage: UNK UNK,UNK
     Route: 065
  14. GLUCOTROL [Concomitant]
     Active Substance: GLIPIZIDE
     Dosage: 5 MG,BID
     Route: 048

REACTIONS (2)
  - Alopecia [Not Recovered/Not Resolved]
  - Psychological trauma [Unknown]

NARRATIVE: CASE EVENT DATE: 201112
